FAERS Safety Report 24044273 (Version 1)
Quarter: 2024Q3

REPORT INFORMATION
  Report Type: Spontaneous
  Country: US (occurrence: US)
  Receive Date: 20240703
  Receipt Date: 20240703
  Transmission Date: 20241016
  Serious: Yes (Other)
  Sender: JOHNSON AND JOHNSON
  Company Number: US-JNJFOC-20240671820

PATIENT
  Sex: Male

DRUGS (1)
  1. DARZALEX FASPRO [Suspect]
     Active Substance: DARATUMUMAB\HYALURONIDASE-FIHJ
     Indication: Plasma cell myeloma
     Dosage: MEDICATION WAS STOPPED IN MARCH 2024
     Route: 065
     Dates: start: 20240508

REACTIONS (3)
  - Surgery [Unknown]
  - Plasma cell myeloma [Unknown]
  - Mood altered [Unknown]
